FAERS Safety Report 9450525 (Version 1)
Quarter: 2013Q3

REPORT INFORMATION
  Report Type: Spontaneous
  Country: IT (occurrence: US)
  Receive Date: 20130809
  Receipt Date: 20130809
  Transmission Date: 20140515
  Serious: Yes (Hospitalization)
  Sender: FDA-Public Use
  Company Number: US-FRI-1000047687

PATIENT
  Sex: Male

DRUGS (3)
  1. BYSTOLIC [Suspect]
     Indication: HYPERTENSION
     Route: 048
     Dates: start: 2013
  2. AZOR [Suspect]
     Indication: HYPERTENSION
     Dosage: 5/40 MG QD
     Route: 048
     Dates: start: 2013, end: 201303
  3. AZOR [Suspect]
     Dosage: 10/40 MG QD
     Route: 048
     Dates: start: 201303

REACTIONS (7)
  - Femoral artery occlusion [Unknown]
  - Drug ineffective [Recovered/Resolved]
  - Muscle spasms [Not Recovered/Not Resolved]
  - Hypoaesthesia [Not Recovered/Not Resolved]
  - Pain in extremity [Not Recovered/Not Resolved]
  - Drug interaction [Unknown]
  - Poor quality sleep [Not Recovered/Not Resolved]
